FAERS Safety Report 19885850 (Version 1)
Quarter: 2021Q3

REPORT INFORMATION
  Report Type: Spontaneous
  Country: US (occurrence: US)
  Receive Date: 20210927
  Receipt Date: 20210927
  Transmission Date: 20211014
  Serious: No
  Sender: FDA-Public Use
  Company Number: US-009507513-2108USA007960

PATIENT
  Sex: Male

DRUGS (6)
  1. REBETOL [Suspect]
     Active Substance: RIBAVIRIN
     Indication: PNEUMONIA RESPIRATORY SYNCYTIAL VIRAL
     Route: 048
  2. CARFILZOMIB [Concomitant]
     Active Substance: CARFILZOMIB
     Indication: PLASMA CELL MYELOMA
     Dosage: 56 MILLIGRAM/SQ. METER, QW
  3. SELINEXOR [Concomitant]
     Active Substance: SELINEXOR
     Indication: PLASMA CELL MYELOMA
     Dosage: 80 MILLIGRAM, TWICE WEEKLY
  4. SELINEXOR [Concomitant]
     Active Substance: SELINEXOR
     Dosage: 100 MILLIGRAM, QW
  5. DEXAMETHASONE. [Concomitant]
     Active Substance: DEXAMETHASONE
     Indication: PLASMA CELL MYELOMA
     Dosage: 40 MILLIGRAM, EVERY 4 WEEKS
  6. CARFILZOMIB [Concomitant]
     Active Substance: CARFILZOMIB
     Dosage: 27 MILLIGRAM/SQ. METER, QW

REACTIONS (1)
  - Product use in unapproved indication [Unknown]
